FAERS Safety Report 25421947 (Version 2)
Quarter: 2025Q3

REPORT INFORMATION
  Report Type: Spontaneous
  Country: CA (occurrence: CA)
  Receive Date: 20250611
  Receipt Date: 20250714
  Transmission Date: 20251020
  Serious: Yes (Other)
  Sender: SPECGX
  Company Number: CA-SPECGX-T202501062

PATIENT
  Age: 45 Year
  Sex: Female

DRUGS (5)
  1. METHADOSE [Suspect]
     Active Substance: METHADONE HYDROCHLORIDE
     Indication: Drug use disorder
     Route: 065
  2. FENTANYL [Suspect]
     Active Substance: FENTANYL
     Indication: Product used for unknown indication
     Dosage: 1.0 GRAM, QD
  3. FENTANYL [Suspect]
     Active Substance: FENTANYL
     Dosage: 0.5 GRAM, QD
  4. SUBLOCADE [Suspect]
     Active Substance: BUPRENORPHINE
     Indication: Drug use disorder
     Route: 058
  5. SUBOXONE [Suspect]
     Active Substance: BUPRENORPHINE HYDROCHLORIDE\NALOXONE HYDROCHLORIDE
     Indication: Drug use disorder
     Route: 065

REACTIONS (3)
  - Pneumonia [Unknown]
  - Drug abuse [Recovering/Resolving]
  - Product dose omission issue [Recovered/Resolved]
